FAERS Safety Report 16157591 (Version 2)
Quarter: 2019Q2

REPORT INFORMATION
  Report Type: Spontaneous
  Country: US (occurrence: US)
  Receive Date: 20190404
  Receipt Date: 20190405
  Transmission Date: 20190711
  Serious: No
  Sender: FDA-Public Use
  Company Number: US-PFIZER INC-2019143319

PATIENT
  Age: 1 Year
  Sex: Male
  Weight: 10.43 kg

DRUGS (5)
  1. ELDERBERRY [SAMBUCUS NIGRA] [Concomitant]
     Indication: IMMUNE SYSTEM DISORDER
     Dosage: 1 TEASPOON A DAY
     Dates: start: 201803
  2. GENOTROPIN [Suspect]
     Active Substance: SOMATROPIN
     Dosage: 0.8 MG, ONCE A DAY FOR 6 DAYS AND THEN 1 DAY OFF
     Route: 058
  3. GENOTROPIN [Suspect]
     Active Substance: SOMATROPIN
     Indication: GROWTH HORMONE DEFICIENCY
     Dosage: 0.4 MG, DAILY (0.4MG 6 DAYS A WEEK)
     Route: 058
     Dates: start: 201901
  4. ZYRTEC [Concomitant]
     Active Substance: CETIRIZINE HYDROCHLORIDE
     Indication: HYPERSENSITIVITY
     Dosage: 2.5 MG, DAILY (IF HE DOESN^T HAVE RUNNY NOSE, WILL NOT GIVE IT)
     Route: 048
     Dates: start: 201803
  5. TYLENOL [Concomitant]
     Active Substance: ACETAMINOPHEN
     Dosage: UNK

REACTIONS (4)
  - Product administration error [Unknown]
  - Product dose omission [Unknown]
  - Product odour abnormal [Unknown]
  - Product storage error [Unknown]

NARRATIVE: CASE EVENT DATE: 20190324
